FAERS Safety Report 5888528-9 (Version None)
Quarter: 2008Q3

REPORT INFORMATION
  Report Type: 
  Country: None (occurrence: None)
  Receive Date: 20080918
  Receipt Date: 20080828
  Transmission Date: 20090109
  Serious: No
  Sender: FDA-Public Use
  Company Number: US-B.I. PHARMACEUTICALS,INC./RIDGEFIELD-2008-BP-13914BP

PATIENT
  Sex: Male

DRUGS (1)
  1. FLOMAX [Suspect]
     Indication: PROSTATOMEGALY
     Dosage: .4MG
     Route: 048
     Dates: start: 20080811, end: 20080814

REACTIONS (4)
  - DRUG INEFFECTIVE [None]
  - PRURITUS GENERALISED [None]
  - RASH GENERALISED [None]
  - RASH MACULO-PAPULAR [None]
